FAERS Safety Report 23155399 (Version 1)
Quarter: 2023Q4

REPORT INFORMATION
  Report Type: Spontaneous
  Country: US (occurrence: US)
  Receive Date: 20231107
  Receipt Date: 20231107
  Transmission Date: 20240110
  Serious: Yes (Other)
  Sender: FDA-Public Use
  Company Number: US-ABBVIE-5484042

PATIENT
  Sex: Male

DRUGS (1)
  1. RESTASIS [Suspect]
     Active Substance: CYCLOSPORINE
     Indication: Product used for unknown indication
     Dosage: 60 SINGLE USE VIALS EACH 0.4 ML, DOSAGE 0.05%.  PRESCRIBED INSTRUCTIONS - 1 DROP 2X DAY LEFT EYE
     Route: 031

REACTIONS (3)
  - Eye excision [Unknown]
  - Pseudomonas infection [Unknown]
  - Eye abrasion [Unknown]
